FAERS Safety Report 7917579-5 (Version None)
Quarter: 2011Q4

REPORT INFORMATION
  Report Type: 
  Country: None (occurrence: None)
  Receive Date: 20111116
  Receipt Date: 20111110
  Transmission Date: 20120403
  Serious: Yes (Other)
  Sender: FDA-Public Use
  Company Number: US-SANOFI-AVENTIS-2011SA072981

PATIENT
  Age: 78 Year
  Sex: Male

DRUGS (4)
  1. CRESTOR [Concomitant]
  2. MULTAQ [Suspect]
     Route: 048
     Dates: start: 20090101
  3. VITAMIN B-12 [Concomitant]
  4. ASPIRIN [Concomitant]

REACTIONS (1)
  - ATRIAL FIBRILLATION [None]
